FAERS Safety Report 10222449 (Version 1)
Quarter: 2014Q2

REPORT INFORMATION
  Report Type: Report from Study
  Country: TW (occurrence: TW)
  Receive Date: 20140606
  Receipt Date: 20140606
  Transmission Date: 20141212
  Serious: Yes (Other)
  Sender: FDA-Public Use
  Company Number: TW-US-EMD SERONO, INC.-7296478

PATIENT
  Sex: Female
  Weight: 66 kg

DRUGS (1)
  1. SAIZEN [Suspect]
     Indication: BRAIN NEOPLASM
     Dates: start: 20090519

REACTIONS (3)
  - Hydronephrosis [Not Recovered/Not Resolved]
  - Muscular weakness [Not Recovered/Not Resolved]
  - Off label use [Unknown]
